FAERS Safety Report 12917544 (Version 4)
Quarter: 2020Q3

REPORT INFORMATION
  Report Type: Spontaneous
  Country: GB (occurrence: GB)
  Receive Date: 20161107
  Receipt Date: 20200702
  Transmission Date: 20201102
  Serious: Yes (Congenital Anomaly, Other)
  Sender: FDA-Public Use
  Company Number: PHHY2016GB148858

PATIENT
  Sex: Female

DRUGS (5)
  1. CITALOPRAM [Suspect]
     Active Substance: CITALOPRAM HYDROBROMIDE
     Indication: FOETAL EXPOSURE DURING PREGNANCY
     Dosage: UNK
     Route: 064
  2. SIMVASTATIN. [Suspect]
     Active Substance: SIMVASTATIN
     Indication: FOETAL EXPOSURE DURING PREGNANCY
     Dosage: UP TO 7TH WEEK OF PREGNANCY.
     Route: 064
  3. OLANZAPINE. [Suspect]
     Active Substance: OLANZAPINE
     Indication: FOETAL EXPOSURE DURING PREGNANCY
     Dosage: UNK
     Route: 064
  4. INSULIN [Suspect]
     Active Substance: INSULIN NOS
     Indication: FOETAL EXPOSURE DURING PREGNANCY
     Dosage: UNK
     Route: 064
  5. ARIPIPRAZOLE. [Suspect]
     Active Substance: ARIPIPRAZOLE
     Indication: FOETAL EXPOSURE DURING PREGNANCY
     Dosage: UNK
     Route: 064

REACTIONS (6)
  - Scleroderma [Unknown]
  - Microphthalmos [Unknown]
  - Iris coloboma [Unknown]
  - Foetal exposure during pregnancy [Unknown]
  - Retinal coloboma [Unknown]
  - Visual impairment [Unknown]
